FAERS Safety Report 6443265-7 (Version None)
Quarter: 2009Q4

REPORT INFORMATION
  Report Type: 
  Country: None (occurrence: None)
  Receive Date: 20091117
  Receipt Date: 20091103
  Transmission Date: 20100525
  Serious: Yes (Hospitalization)
  Sender: FDA-Public Use
  Company Number: US-SANOFI-AVENTIS-2009SA001302

PATIENT
  Sex: Male

DRUGS (3)
  1. AMARYL [Suspect]
     Indication: TYPE 2 DIABETES MELLITUS
     Route: 065
     Dates: end: 20080101
  2. LANTUS [Concomitant]
     Dosage: DOSE:10 UNIT(S)
     Route: 058
     Dates: start: 20090101
  3. ACTOS [Concomitant]
     Route: 048
     Dates: start: 20080101

REACTIONS (2)
  - BLOOD GLUCOSE DECREASED [None]
  - NEPHROLITHIASIS [None]
